FAERS Safety Report 9170213 (Version 2)
Quarter: 2013Q3

REPORT INFORMATION
  Report Type: Spontaneous
  Country: US (occurrence: US)
  Receive Date: 20130319
  Receipt Date: 20130903
  Transmission Date: 20140515
  Serious: Yes (Death, Hospitalization, Other)
  Sender: FDA-Public Use
  Company Number: PHEH2013US006288

PATIENT
  Age: 59 Year
  Sex: Female
  Weight: 79 kg

DRUGS (10)
  1. AFINITOR [Suspect]
     Indication: BREAST CANCER METASTATIC
     Dosage: 10 MG, QD
     Route: 048
     Dates: start: 20130107, end: 20130212
  2. DEXAMETHASONE [Suspect]
     Dosage: 2 MG, BID
     Route: 048
  3. AROMASIN [Concomitant]
     Indication: BREAST CANCER METASTATIC
     Dosage: 25 MG, QD
     Route: 048
     Dates: start: 20130104, end: 20130213
  4. KEPPRA [Concomitant]
     Dosage: 500 MG, BID
     Route: 048
  5. SYNTHROID [Concomitant]
     Dosage: 50 UG, DAILY
     Route: 048
  6. GLIPIZIDE XL [Concomitant]
     Dosage: 2.5 MG, DAILY
     Route: 048
  7. ZOCOR [Concomitant]
     Dosage: 80 MG, UNK
     Route: 048
  8. MORPHINE [Concomitant]
     Dosage: 15 MG, BID
  9. VALIUM [Concomitant]
     Dosage: 2 MG, QHS
  10. ZOFRAN [Concomitant]
     Dosage: 4 MG, PRN

REACTIONS (5)
  - Pneumocystis jirovecii pneumonia [Fatal]
  - Cough [Fatal]
  - Dyspnoea [Fatal]
  - Productive cough [Fatal]
  - Lung infiltration [Unknown]
